FAERS Safety Report 4425905-7 (Version None)
Quarter: 2004Q3

REPORT INFORMATION
  Report Type: 
  Country: None (occurrence: None)
  Receive Date: 20040719
  Receipt Date: 20040511
  Transmission Date: 20050211
  Serious: No
  Sender: FDA-Public Use
  Company Number: A03200401504

PATIENT
  Sex: Male

DRUGS (1)
  1. UROXATRAL [Suspect]
     Dosage: ORAL
     Route: 048
     Dates: start: 20040101

REACTIONS (1)
  - NOCTURIA [None]
